FAERS Safety Report 9179139 (Version 2)
Quarter: 2013Q3

REPORT INFORMATION
  Report Type: Report from Study
  Country: TH (occurrence: TH)
  Receive Date: 20121029
  Receipt Date: 20130810
  Transmission Date: 20140515
  Serious: Yes (Hospitalization, Other)
  Sender: FDA-Public Use
  Company Number: TH-TEVA-365873ISR

PATIENT
  Age: 54 Year
  Sex: Female
  Weight: 60.3 kg

DRUGS (11)
  1. EMTREXATE [Suspect]
     Indication: RHEUMATOID ARTHRITIS
     Route: 048
     Dates: start: 20090915, end: 20120809
  2. CP-690,550 [Suspect]
     Indication: RHEUMATOID ARTHRITIS
     Dosage: 20 MILLIGRAM DAILY;
     Route: 048
     Dates: start: 20101125, end: 20120808
  3. CP-690,550 [Suspect]
     Dosage: 10 MICROGRAM DAILY;
     Route: 048
     Dates: start: 20120809, end: 20120809
  4. OMEPRAZOLE [Suspect]
     Indication: PROPHYLAXIS AGAINST GASTROINTESTINAL ULCER
     Dosage: 20 MILLIGRAM DAILY;
     Route: 048
     Dates: start: 20071120
  5. PREDNISOLONE [Concomitant]
     Indication: RHEUMATOID ARTHRITIS
     Dosage: 5 MILLIGRAM DAILY;
     Route: 048
     Dates: start: 20070821
  6. FOLIC ACID [Concomitant]
     Indication: RHEUMATOID ARTHRITIS
     Dosage: 5 MILLIGRAM DAILY;
     Route: 048
     Dates: start: 20061212
  7. MELOXICAM [Concomitant]
     Indication: RHEUMATOID ARTHRITIS
     Dosage: 7.5 MILLIGRAM DAILY;
     Dates: start: 20101223, end: 20120809
  8. CALCIUM CARBONATE [Concomitant]
     Indication: MINERAL SUPPLEMENTATION
     Dosage: 1500 MILLIGRAM DAILY;
     Route: 048
     Dates: start: 20061108
  9. MULTIVITAMINS [Concomitant]
     Indication: VITAMIN SUPPLEMENTATION
     Dosage: 1 TABLET TWICE DAILY
     Route: 048
     Dates: start: 20061108
  10. AMLODIPINE [Concomitant]
     Indication: HYPERTENSION
     Dosage: 10 MILLIGRAM DAILY;
     Route: 048
     Dates: start: 20100115
  11. SIMVASTATIN [Concomitant]
     Indication: DYSLIPIDAEMIA
     Dosage: 10 MILLIGRAM DAILY;
     Route: 048
     Dates: start: 20090331

REACTIONS (1)
  - Necrotising fasciitis [Recovered/Resolved]
